FAERS Safety Report 6997412-9 (Version None)
Quarter: 2010Q3

REPORT INFORMATION
  Report Type: 
  Country: None (occurrence: None)
  Receive Date: 20100918
  Receipt Date: 20091009
  Transmission Date: 20110219
  Serious: Yes (Other)
  Sender: FDA-Public Use
  Company Number: US-WYE-H11524109

PATIENT
  Age: 63 Year
  Sex: Female

DRUGS (3)
  1. PRISTIQ [Suspect]
     Indication: DEPRESSION
     Route: 048
     Dates: start: 20090924
  2. PRISTIQ [Suspect]
     Indication: PANIC DISORDER
  3. PRISTIQ [Suspect]
     Indication: ANXIETY

REACTIONS (4)
  - BLOOD PRESSURE INCREASED [None]
  - BURNING SENSATION [None]
  - NOCTURIA [None]
  - PAIN [None]
